FAERS Safety Report 15950965 (Version 1)
Quarter: 2019Q1

REPORT INFORMATION
  Report Type: Spontaneous
  Country: US (occurrence: US)
  Receive Date: 20190211
  Receipt Date: 20190211
  Transmission Date: 20190417
  Serious: No
  Sender: FDA-Public Use
  Company Number: US-NEXGEN PHARMA, INC.-2062482

PATIENT
  Age: 25 Year
  Sex: Female

DRUGS (1)
  1. CHENODAL [Suspect]
     Active Substance: CHENODIOL
     Indication: DIARRHOEA NEONATAL
     Route: 048
     Dates: start: 20171220

REACTIONS (3)
  - Blood calcium increased [Unknown]
  - Electrocardiogram abnormal [Unknown]
  - Arteriosclerosis [Unknown]
